FAERS Safety Report 5160824-2 (Version None)
Quarter: 2006Q4

REPORT INFORMATION
  Report Type: 
  Country: None (occurrence: None)
  Receive Date: 20061121
  Receipt Date: 20061107
  Transmission Date: 20070319
  Serious: Yes (Death)
  Sender: FDA-Public Use
  Company Number: 2006JP004581

PATIENT
  Sex: Female

DRUGS (7)
  1. TACROLIMUS CAPSULES (TACROLIMUS) CAPSULE [Suspect]
     Indication: RHEUMATOID ARTHRITIS
     Dosage: SEE IMAGE
     Route: 048
     Dates: start: 20051004, end: 20051017
  2. TACROLIMUS CAPSULES (TACROLIMUS) CAPSULE [Suspect]
     Indication: RHEUMATOID ARTHRITIS
     Dosage: SEE IMAGE
     Route: 048
     Dates: start: 20051018
  3. PREDNISOLONE [Concomitant]
  4. VOLTAREN PER ORAL NOS [Concomitant]
  5. ALESION (EPINASTINE HYDROCHLORIDE) PER ORAL NOS [Concomitant]
  6. GASTER D ORODISPERSABLE CR TABLET [Concomitant]
  7. HALCION [Concomitant]

REACTIONS (1)
  - VICTIM OF HOMICIDE [None]
